FAERS Safety Report 23789919 (Version 1)
Quarter: 2024Q2

REPORT INFORMATION
  Report Type: Spontaneous
  Country: US (occurrence: None)
  Receive Date: 20240424
  Receipt Date: 20240424
  Transmission Date: 20240716
  Serious: Yes (Hospitalization)
  Sender: FDA-Public Use
  Company Number: None

PATIENT
  Age: 57 Year
  Sex: Male

DRUGS (1)
  1. ATORVASTATIN CALCIUM [Suspect]
     Active Substance: ATORVASTATIN CALCIUM
     Indication: Hyperlipidaemia
     Dosage: FREQUENCY : DAILY;?
     Route: 048
     Dates: start: 20210412, end: 20240116

REACTIONS (8)
  - Abdominal discomfort [None]
  - Muscle spasms [None]
  - Myalgia [None]
  - Vomiting [None]
  - Nausea [None]
  - Muscle spasms [None]
  - Rhabdomyolysis [None]
  - Therapy cessation [None]

NARRATIVE: CASE EVENT DATE: 20240116
